FAERS Safety Report 15945969 (Version 1)
Quarter: 2019Q1

REPORT INFORMATION
  Report Type: Spontaneous
  Country: US (occurrence: US)
  Receive Date: 20190119
  Receipt Date: 20190119
  Transmission Date: 20190417
  Serious: Yes (Hospitalization)
  Sender: FDA-Public Use
  Company Number: None

PATIENT
  Age: 59 Year
  Sex: Female
  Weight: 65 kg

DRUGS (1)
  1. NOLVADEX [Suspect]
     Active Substance: TAMOXIFEN CITRATE
     Dates: end: 20180414

REACTIONS (4)
  - Pyrexia [None]
  - Urinary tract infection [None]
  - Laboratory test interference [None]
  - Hypophosphataemia [None]

NARRATIVE: CASE EVENT DATE: 20180415
